FAERS Safety Report 25242943 (Version 1)
Quarter: 2025Q2

REPORT INFORMATION
  Report Type: Spontaneous
  Country: HR (occurrence: HR)
  Receive Date: 20250428
  Receipt Date: 20250428
  Transmission Date: 20250717
  Serious: Yes (Other)
  Sender: ASTELLAS
  Company Number: HR-ASTELLAS-2025-AER-022072

PATIENT
  Age: 62 Year
  Sex: Female

DRUGS (6)
  1. TACROLIMUS [Suspect]
     Active Substance: TACROLIMUS
     Indication: Liver transplant
     Route: 065
     Dates: start: 201905
  2. TACROLIMUS [Suspect]
     Active Substance: TACROLIMUS
     Dosage: DOSAGE TITRATED TO TARGETED C0 CONCENTRATION 4-8 NG/ML 1 MONTH AFTER TRANSPLANTATION, 1 + 1 MG PER D
     Route: 065
     Dates: start: 201906
  3. TACROLIMUS [Suspect]
     Active Substance: TACROLIMUS
     Dosage: INCREASED, 1.5 + 1.5 MG PER DAY
     Route: 065
     Dates: start: 202206
  4. PREDNISONE [Concomitant]
     Active Substance: PREDNISONE
     Indication: Liver transplant
     Route: 065
     Dates: start: 201905
  5. PREDNISONE [Concomitant]
     Active Substance: PREDNISONE
     Route: 065
     Dates: start: 2019
  6. MYCOPHENOLATE MOFETIL [Concomitant]
     Active Substance: MYCOPHENOLATE MOFETIL
     Indication: Liver transplant
     Dosage: 1 TO 2 G/D FOR 12 MONTHS
     Route: 065
     Dates: start: 201905

REACTIONS (5)
  - Invasive ductal breast carcinoma [Recovered/Resolved]
  - Metastases to chest wall [Recovered/Resolved]
  - Metastases to spine [Recovered/Resolved]
  - Metastases to bone [Recovered/Resolved]
  - Disease recurrence [Recovered/Resolved]

NARRATIVE: CASE EVENT DATE: 20201201
